FAERS Safety Report 19004426 (Version 3)
Quarter: 2021Q2

REPORT INFORMATION
  Report Type: Report from Study
  Country: US (occurrence: US)
  Receive Date: 20210312
  Receipt Date: 20210419
  Transmission Date: 20210717
  Serious: Yes (Hospitalization, Other)
  Sender: FDA-Public Use
  Company Number: US-BRISTOL-MYERS SQUIBB COMPANY-BMS-2021-022856

PATIENT
  Age: 86 Year
  Sex: Male
  Weight: 94.3 kg

DRUGS (3)
  1. NIVOLUMAB [Suspect]
     Active Substance: NIVOLUMAB
     Indication: MALIGNANT MELANOMA
     Dosage: 3 MILLIGRAM/KILOGRAM, Q2WK
     Route: 042
     Dates: start: 20201221, end: 20210224
  2. TOCILIZUMAB. [Suspect]
     Active Substance: TOCILIZUMAB
     Indication: MALIGNANT MELANOMA
     Dosage: 4 MILLIGRAM/KILOGRAM, Q2WK
     Route: 042
     Dates: start: 20201221, end: 20210203
  3. IPILIMUMAB [Suspect]
     Active Substance: IPILIMUMAB
     Indication: MALIGNANT MELANOMA
     Dosage: 1 MILLIGRAM/KILOGRAM, Q2WK
     Route: 042
     Dates: start: 20201221, end: 20210224

REACTIONS (2)
  - Acute kidney injury [Unknown]
  - Cough [Unknown]

NARRATIVE: CASE EVENT DATE: 20210304
